FAERS Safety Report 22260360 (Version 1)
Quarter: 2023Q2

REPORT INFORMATION
  Report Type: Spontaneous
  Country: US (occurrence: None)
  Receive Date: 20230425
  Receipt Date: 20230425
  Transmission Date: 20230721
  Serious: No
  Sender: FDA-Public Use
  Company Number: None

PATIENT
  Age: 80 Year
  Sex: Male
  Weight: 102.06 kg

DRUGS (21)
  1. PROMACTA [Suspect]
     Active Substance: ELTROMBOPAG OLAMINE
     Indication: Immune thrombocytopenia
     Dosage: FREQUENCY : DAILY;?
     Route: 048
  2. ATENOLOL [Concomitant]
     Active Substance: ATENOLOL
  3. ATORVASTATIN [Concomitant]
     Active Substance: ATORVASTATIN
  4. BACLOFEN [Concomitant]
     Active Substance: BACLOFEN
  5. CALCIUM\VITAMIN D [Concomitant]
     Active Substance: CALCIUM\VITAMIN D
  6. COLCHICINE [Concomitant]
     Active Substance: COLCHICINE
  7. DEXAMETHASONE [Concomitant]
     Active Substance: DEXAMETHASONE
  8. DOCUSATE [Concomitant]
     Active Substance: DOCUSATE
  9. ELIQUIS [Concomitant]
     Active Substance: APIXABAN
  10. FLUTICASONE [Concomitant]
     Active Substance: FLUTICASONE
  11. GABAPENTIN [Concomitant]
     Active Substance: GABAPENTIN
  12. LASIX [Concomitant]
     Active Substance: FUROSEMIDE
  13. MELOXICAM [Concomitant]
     Active Substance: MELOXICAM
  14. MIRALAX [Concomitant]
     Active Substance: POLYETHYLENE GLYCOL 3350
  15. VITAMINS [Concomitant]
     Active Substance: VITAMINS
  16. MYRBETRI Q [Concomitant]
  17. OMEGA-3 ACIDS [Concomitant]
     Active Substance: OMEGA-3 FATTY ACIDS
  18. OXYCODONE [Concomitant]
     Active Substance: OXYCODONE
  19. PAROXETINE [Concomitant]
     Active Substance: PAROXETINE
  20. SEROQUEL [Concomitant]
     Active Substance: QUETIAPINE FUMARATE
  21. TYLENOL [Concomitant]
     Active Substance: ACETAMINOPHEN

REACTIONS (1)
  - Hospice care [None]
